FAERS Safety Report 7220824-5 (Version None)
Quarter: 2011Q1

REPORT INFORMATION
  Report Type: 
  Country: None (occurrence: None)
  Receive Date: 20110112
  Receipt Date: 20110104
  Transmission Date: 20110831
  Serious: Yes (Hospitalization)
  Sender: FDA-Public Use
  Company Number: US-BIOGENIDEC-2010BI044759

PATIENT
  Sex: Male

DRUGS (1)
  1. AVONEX [Suspect]
     Indication: MULTIPLE SCLEROSIS
     Route: 030
     Dates: start: 19970401

REACTIONS (5)
  - DIABETES MELLITUS INADEQUATE CONTROL [None]
  - DECUBITUS ULCER [None]
  - MYOCARDIAL INFARCTION [None]
  - IMPAIRED HEALING [None]
  - PNEUMONIA [None]
